FAERS Safety Report 17181463 (Version 10)
Quarter: 2020Q4

REPORT INFORMATION
  Report Type: Report from Study
  Country: CH (occurrence: CH)
  Receive Date: 20191219
  Receipt Date: 20201028
  Transmission Date: 20210113
  Serious: Yes (Hospitalization)
  Sender: FDA-Public Use
  Company Number: CH-EXELIXIS-XL18419026014

PATIENT
  Age: 61 Year
  Sex: Male
  Weight: 92.5 kg

DRUGS (17)
  1. XL184 [Suspect]
     Active Substance: CABOZANTINIB
     Dosage: 40 MG, QD
     Route: 048
     Dates: start: 20200108
  2. LEVOTHYROXIN [Concomitant]
     Active Substance: LEVOTHYROXINE
  3. ESOMEPRAZOL [Concomitant]
     Active Substance: ESOMEPRAZOLE
  4. METFORMIN [Concomitant]
     Active Substance: METFORMIN HYDROCHLORIDE
  5. PHENPROCOUMON [Concomitant]
     Active Substance: PHENPROCOUMON
  6. EMPAGLIFLOZIN [Concomitant]
     Active Substance: EMPAGLIFLOZIN
  7. ZINC. [Concomitant]
     Active Substance: ZINC
  8. MAGNESIUM [Concomitant]
     Active Substance: MAGNESIUM
  9. VALSARTAN. [Concomitant]
     Active Substance: VALSARTAN
  10. VAXIGRIP [Concomitant]
     Active Substance: INFLUENZA VIRUS VACCINE
  11. TORASEMID [Concomitant]
     Active Substance: TORSEMIDE
  12. NORSOL [Concomitant]
     Active Substance: NORFLOXACIN
  13. XL184 [Suspect]
     Active Substance: CABOZANTINIB
     Indication: HEPATOCELLULAR CARCINOMA
     Dosage: 60 MG, QD
     Route: 048
     Dates: start: 20191112
  14. INDERAL [Concomitant]
     Active Substance: PROPRANOLOL HYDROCHLORIDE
  15. IMODIUM [Concomitant]
     Active Substance: LOPERAMIDE HYDROCHLORIDE
  16. LACTULOSE. [Concomitant]
     Active Substance: LACTULOSE
  17. ALDACTONE [Concomitant]
     Active Substance: SPIRONOLACTONE

REACTIONS (2)
  - Visceral venous thrombosis [Recovered/Resolved with Sequelae]
  - Hepatic encephalopathy [Recovered/Resolved]

NARRATIVE: CASE EVENT DATE: 20191205
